FAERS Safety Report 9456785 (Version 1)
Quarter: 2013Q3

REPORT INFORMATION
  Report Type: Other
  Country: DK (occurrence: IT)
  Receive Date: 20130813
  Receipt Date: 20130813
  Transmission Date: 20140515
  Serious: Yes (Hospitalization)
  Sender: FDA-Public Use
  Company Number: IT-FRI-1000047681

PATIENT
  Age: 89 Year
  Sex: Female

DRUGS (3)
  1. CITALOPRAM [Suspect]
     Indication: DEPRESSION
     Dosage: 40 MG
  2. LEVOSULPIRIDE [Interacting]
     Indication: DYSPEPSIA
     Dosage: 75 MG
  3. RAMIPRIL [Concomitant]
     Indication: HYPERTENSION

REACTIONS (4)
  - Cardiac arrest [Recovered/Resolved]
  - Ventricular tachycardia [Recovered/Resolved]
  - Electrocardiogram QT prolonged [Recovered/Resolved]
  - Drug interaction [Recovered/Resolved]
